FAERS Safety Report 11843820 (Version 1)
Quarter: 2015Q4

REPORT INFORMATION
  Report Type: Spontaneous
  Country: CA (occurrence: CA)
  Receive Date: 20151217
  Receipt Date: 20151217
  Transmission Date: 20160305
  Serious: Yes (Hospitalization, Other)
  Sender: FDA-Public Use
  Company Number: CA-009507513-1407CAN013796

PATIENT
  Age: 53 Year
  Sex: Female

DRUGS (2)
  1. EMEND [Suspect]
     Active Substance: APREPITANT
     Indication: NAUSEA
     Dosage: UNK UNK, Q3W
     Route: 048
     Dates: start: 20140331, end: 201407
  2. EMEND [Suspect]
     Active Substance: APREPITANT
     Dosage: 80 MG FOR 4 DAYS POST CHEMOTHERAPY TREATMENT EVERY 2 WEEKS
     Route: 048

REACTIONS (4)
  - Cystitis [Unknown]
  - Myocardial infarction [Recovered/Resolved]
  - Inappropriate schedule of drug administration [Unknown]
  - Incorrect drug administration duration [Unknown]

NARRATIVE: CASE EVENT DATE: 20140721
